FAERS Safety Report 8923714 (Version 1)
Quarter: 2012Q4

REPORT INFORMATION
  Report Type: Spontaneous
  Country: PL (occurrence: None)
  Receive Date: 20121115
  Receipt Date: 20121115
  Transmission Date: 20130627
  Serious: Yes (Hospitalization, Other)
  Sender: FDA-Public Use
  Company Number: IMP_06063_2012

PATIENT
  Age: 30 Year
  Sex: Female

DRUGS (2)
  1. ANAGRELIDE [Suspect]
     Indication: ESSENTIAL THROMBOCYTHAEMIA
  2. PHENTERMINE [Suspect]
     Indication: WEIGHT LOSS DIET
     Dosage: (DF)

REACTIONS (2)
  - Stress cardiomyopathy [None]
  - Myocardial ischaemia [None]
